FAERS Safety Report 10875000 (Version 2)
Quarter: 2015Q1

REPORT INFORMATION
  Report Type: Spontaneous
  Country: GB (occurrence: GB)
  Receive Date: 20150227
  Receipt Date: 20150316
  Transmission Date: 20150721
  Serious: Yes (Other)
  Sender: FDA-Public Use
  Company Number: GB-PFIZER INC-2015066069

PATIENT
  Age: 73 Year
  Sex: Male

DRUGS (4)
  1. DOXAZOSIN [Concomitant]
     Active Substance: DOXAZOSIN\DOXAZOSIN MESYLATE
     Indication: HYPERTENSION
     Dosage: UNK
     Dates: start: 2002
  2. AMLODIPINE [Concomitant]
     Active Substance: AMLODIPINE BESYLATE
     Indication: HYPERTENSION
     Dosage: UNK
     Dates: start: 2015
  3. ATENOLOL. [Concomitant]
     Active Substance: ATENOLOL
     Indication: PROPHYLAXIS
     Dosage: UNK
     Dates: start: 2002
  4. LIPITOR [Suspect]
     Active Substance: ATORVASTATIN CALCIUM
     Indication: BLOOD CHOLESTEROL INCREASED
     Dosage: 10 MG, DAILY
     Dates: start: 2002

REACTIONS (7)
  - Chest pain [Recovered/Resolved]
  - Hypertension [Recovered/Resolved]
  - Sleep disorder [Unknown]
  - Deafness [Not Recovered/Not Resolved]
  - Vision blurred [Unknown]
  - Sexual dysfunction [Unknown]
  - Cardiac flutter [Recovered/Resolved]

NARRATIVE: CASE EVENT DATE: 201501
